FAERS Safety Report 11748002 (Version 1)
Quarter: 2015Q4

REPORT INFORMATION
  Report Type: Spontaneous
  Country: US (occurrence: US)
  Receive Date: 20151117
  Receipt Date: 20151117
  Transmission Date: 20160304
  Serious: Yes (Hospitalization, Other)
  Sender: FDA-Public Use
  Company Number: US-GLAXOSMITHKLINE-US2015161163

PATIENT
  Sex: Female

DRUGS (4)
  1. IMITREX [Suspect]
     Active Substance: SUMATRIPTAN\SUMATRIPTAN SUCCINATE
     Indication: MIGRAINE
     Dosage: 100 MG, PRN
     Route: 048
  2. IMITREX [Suspect]
     Active Substance: SUMATRIPTAN\SUMATRIPTAN SUCCINATE
     Indication: MIGRAINE
     Dosage: UNK, PRN
     Route: 042
  3. IMITREX [Suspect]
     Active Substance: SUMATRIPTAN\SUMATRIPTAN SUCCINATE
     Indication: MIGRAINE
     Dosage: 20 MG, UNK
     Route: 045
  4. NORCO [Concomitant]
     Active Substance: ACETAMINOPHEN\HYDROCODONE BITARTRATE

REACTIONS (22)
  - Alopecia [Unknown]
  - Gastric bypass [Unknown]
  - Neck deformity [Not Recovered/Not Resolved]
  - Gastrointestinal necrosis [Unknown]
  - Movement disorder [Recovered/Resolved]
  - Surgery [Recovered/Resolved]
  - Laceration [Recovered/Resolved]
  - Complex regional pain syndrome [Not Recovered/Not Resolved]
  - Joint stiffness [Recovered/Resolved]
  - Pain in extremity [Not Recovered/Not Resolved]
  - Intervertebral disc displacement [Not Recovered/Not Resolved]
  - Hysterectomy [Recovered/Resolved]
  - Intestinal resection [Unknown]
  - Hypertension [Not Recovered/Not Resolved]
  - Joint range of motion decreased [Not Recovered/Not Resolved]
  - Pain [Not Recovered/Not Resolved]
  - Autoimmune thyroiditis [Unknown]
  - Hypersensitivity [Recovered/Resolved]
  - Hypothyroidism [Not Recovered/Not Resolved]
  - Hyperthyroidism [Not Recovered/Not Resolved]
  - Cholecystectomy [Unknown]
  - Exostosis [Not Recovered/Not Resolved]

NARRATIVE: CASE EVENT DATE: 1999
